FAERS Safety Report 5108658-9 (Version None)
Quarter: 2006Q3

REPORT INFORMATION
  Report Type: 
  Country: None (occurrence: None)
  Receive Date: 20060915
  Receipt Date: 20060912
  Transmission Date: 20061208
  Serious: Yes (Hospitalization)
  Sender: FDA-Public Use
  Company Number: E2090-00081-SPO-KR

PATIENT
  Age: 56 Year
  Sex: Male
  Weight: 60 kg

DRUGS (4)
  1. ZONISAMIDE [Suspect]
     Indication: CONVULSION PROPHYLAXIS
     Dosage: 100 MG, ORAL
     Route: 048
     Dates: start: 20060703, end: 20060821
  2. ALSOBEN [Concomitant]
  3. NEUROMED [Concomitant]
  4. BAYMESS [Concomitant]

REACTIONS (3)
  - MENTAL STATUS CHANGES [None]
  - STEVENS-JOHNSON SYNDROME [None]
  - TOXIC SKIN ERUPTION [None]
